FAERS Safety Report 11627691 (Version 1)
Quarter: 2015Q4

REPORT INFORMATION
  Report Type: Report from Study
  Country: US (occurrence: US)
  Receive Date: 20151014
  Receipt Date: 20151014
  Transmission Date: 20160304
  Serious: No
  Sender: FDA-Public Use
  Company Number: US-AMGEN-USASL2015105620

PATIENT
  Sex: Male

DRUGS (1)
  1. ENBREL [Suspect]
     Active Substance: ETANERCEPT
     Indication: RHEUMATOID ARTHRITIS
     Dosage: 50 MG, QWK
     Route: 065

REACTIONS (8)
  - Alopecia [Unknown]
  - Headache [Unknown]
  - Drug effect incomplete [Unknown]
  - Pain in extremity [Unknown]
  - Memory impairment [Unknown]
  - Depression [Unknown]
  - Fear [Unknown]
  - Gait disturbance [Unknown]
